FAERS Safety Report 8286771-5 (Version None)
Quarter: 2012Q2

REPORT INFORMATION
  Report Type: 
  Country: None (occurrence: None)
  Receive Date: 20120411
  Receipt Date: 20120402
  Transmission Date: 20120825
  Serious: Yes (Other)
  Sender: FDA-Public Use
  Company Number: KAD201204-000228

PATIENT
  Age: 52 Year
  Sex: Female

DRUGS (3)
  1. RIBAVIRIN [Suspect]
  2. VICTRELIS [Suspect]
  3. PEGASYS [Suspect]

REACTIONS (4)
  - ANAEMIA [None]
  - DIARRHOEA [None]
  - WHITE BLOOD CELL COUNT DECREASED [None]
  - DYSGEUSIA [None]
